FAERS Safety Report 4621455-3 (Version None)
Quarter: 2005Q2

REPORT INFORMATION
  Report Type: 
  Country: None (occurrence: None)
  Receive Date: 20050318
  Receipt Date: 20041026
  Transmission Date: 20051028
  Serious: No
  Sender: FDA-Public Use
  Company Number: 384411

PATIENT
  Age: 57 Year
  Sex: Female
  Weight: 70.8 kg

DRUGS (6)
  1. BUMEX [Suspect]
     Indication: CARDIAC FAILURE CONGESTIVE
     Dosage: 1 MG 1 PER DAY ORAL
     Route: 048
     Dates: start: 20040910
  2. LASIX [Concomitant]
  3. LEVOTHYROXINE SODIUM [Concomitant]
  4. LOTENSIN [Concomitant]
  5. ZOCOR [Concomitant]
  6. POTASSIUM (POTASSIUM NOS) [Concomitant]

REACTIONS (3)
  - ASTHENIA [None]
  - DYSPNOEA [None]
  - HYPOVOLAEMIA [None]
